FAERS Safety Report 7312453-X (Version None)
Quarter: 2011Q1

REPORT INFORMATION
  Report Type: 
  Country: None (occurrence: None)
  Receive Date: 20110224
  Receipt Date: 20110222
  Transmission Date: 20110831
  Serious: Yes (Death, Life-Threatening, Hospitalization)
  Sender: FDA-Public Use
  Company Number: DE-ROCHE-680662

PATIENT
  Sex: Male
  Weight: 67 kg

DRUGS (11)
  1. TAMSULOSIN [Concomitant]
     Indication: MICTURITION DISORDER
     Route: 048
     Dates: start: 20090821
  2. CITALOPRAM [Concomitant]
     Route: 048
     Dates: start: 20100119
  3. IMODIUM [Concomitant]
     Route: 048
     Dates: start: 20090101, end: 20101105
  4. OXALIPLATIN [Suspect]
     Indication: RECTAL CANCER
     Dosage: MOST RECENT DOSE BEFORE SAE: 11 JAN 2010, FREQUENCY: ON DAY 1 OF 3 WEEK CYCLE.
     Route: 042
     Dates: start: 20090831
  5. ZOLPIDEMTARTRAT [Concomitant]
     Indication: INSOMNIA
     Route: 048
     Dates: start: 20091221
  6. MELPERON [Concomitant]
     Indication: INSOMNIA
     Route: 048
     Dates: start: 20100119
  7. OPIUM [Concomitant]
  8. CAPECITABINE [Suspect]
     Indication: RECTAL CANCER
     Dosage: MOST RECENT DOSE BEFORE SAE: 11 JAN 2010, BID ON DAY 1 AND DAY 15 OF 3 WEEK CYCLE.
     Route: 048
     Dates: start: 20090831
  9. GLIMEPIRID [Concomitant]
     Indication: DIABETES MELLITUS
     Dates: end: 20101105
  10. METAMIZOL [Concomitant]
     Indication: PAIN
     Dosage: SCHEDULE: 40- 40 -40- 40 DROPS.
     Route: 048
     Dates: start: 20091221
  11. CLYSTER [Concomitant]
     Dates: start: 20091201

REACTIONS (7)
  - DIARRHOEA [None]
  - MAJOR DEPRESSION [None]
  - COMPLETED SUICIDE [None]
  - MUCOSAL INFLAMMATION [None]
  - HIDRADENITIS [None]
  - DEPRESSION SUICIDAL [None]
  - INTESTINAL ANASTOMOSIS COMPLICATION [None]
